FAERS Safety Report 24884369 (Version 1)
Quarter: 2025Q1

REPORT INFORMATION
  Report Type: Report from Study
  Country: US (occurrence: US)
  Receive Date: 20250124
  Receipt Date: 20250124
  Transmission Date: 20250408
  Serious: Yes (Other)
  Sender: ALEXION PHARMACEUTICALS
  Company Number: US-ASTRAZENECA-202501USA017989US

PATIENT

DRUGS (1)
  1. STRENSIQ [Suspect]
     Active Substance: ASFOTASE ALFA
     Route: 065

REACTIONS (13)
  - Rheumatoid arthritis [Unknown]
  - Weight decreased [Unknown]
  - Fatigue [Unknown]
  - Hot flush [Unknown]
  - Asthenia [Unknown]
  - Diarrhoea [Unknown]
  - Appetite disorder [Unknown]
  - Micturition urgency [Unknown]
  - Alopecia [Unknown]
  - Temperature intolerance [Unknown]
  - Seasonal allergy [Unknown]
  - Increased tendency to bruise [Unknown]
  - Haemorrhage [Unknown]
